FAERS Safety Report 6515800-1 (Version None)
Quarter: 2009Q4

REPORT INFORMATION
  Report Type: 
  Country: None (occurrence: None)
  Receive Date: 20091223
  Receipt Date: 20091214
  Transmission Date: 20100525
  Serious: Yes (Death, Other)
  Sender: FDA-Public Use
  Company Number: PHHY2009CO56063

PATIENT
  Age: 31 Year
  Sex: Female

DRUGS (4)
  1. CLOFAZIMINE [Suspect]
     Indication: LEPROMATOUS LEPROSY
     Dosage: 400 MG/DAY
  2. PREDNISOLONE [Concomitant]
     Indication: LEPROMATOUS LEPROSY
  3. THALIDOMIDE [Concomitant]
     Indication: LEPROMATOUS LEPROSY
  4. CORTICOSTEROIDS [Concomitant]
     Indication: SKIN NODULE

REACTIONS (17)
  - ABDOMINAL PAIN [None]
  - ABDOMINAL PAIN UPPER [None]
  - ANAEMIA [None]
  - APATHY [None]
  - CANDIDIASIS [None]
  - DECREASED APPETITE [None]
  - DIARRHOEA [None]
  - ESCHAR [None]
  - GASTRITIS [None]
  - GASTROINTESTINAL DISORDER [None]
  - LYMPHADENOPATHY [None]
  - MAJOR DEPRESSION [None]
  - MUSCLE SPASMS [None]
  - NAUSEA [None]
  - SYNCOPE [None]
  - VOMITING [None]
  - WEIGHT DECREASED [None]
